FAERS Safety Report 9578955 (Version 2)
Quarter: 2025Q3

REPORT INFORMATION
  Report Type: Report from Study
  Country: US (occurrence: US)
  Receive Date: 20131001
  Receipt Date: 20250804
  Transmission Date: 20251021
  Serious: Yes (Other)
  Sender: AMGEN
  Company Number: US-AMGEN-USASP2013015519

PATIENT
  Sex: Female
  Weight: 70.295 kg

DRUGS (15)
  1. ENBREL [Suspect]
     Active Substance: ETANERCEPT
     Indication: Rheumatoid arthritis
     Dosage: 50 MG, QWK, ON EVERY FRIDAYS
     Route: 058
     Dates: start: 20050719
  2. PREDNISONE [Concomitant]
     Active Substance: PREDNISONE
     Dosage: 5 MILLIGRAM, QD
     Dates: start: 202506
  3. CELEBREX [Concomitant]
     Active Substance: CELECOXIB
  4. TYLENOL WITH CODEINE [Concomitant]
     Active Substance: ACETAMINOPHEN\CODEINE PHOSPHATE
  5. METHOTREXATE [Concomitant]
     Active Substance: METHOTREXATE
  6. VICODIN [Concomitant]
     Active Substance: ACETAMINOPHEN\HYDROCODONE BITARTRATE
  7. PEPCID AC [Concomitant]
     Active Substance: FAMOTIDINE
  8. CALCIUM\VITAMIN D [Concomitant]
     Active Substance: CALCIUM\VITAMIN D
     Dosage: UNK UNK, BID
     Dates: start: 2009
  9. FOLIC ACID [Concomitant]
     Active Substance: FOLIC ACID
  10. ZINC [Concomitant]
     Active Substance: ZINC
     Dosage: 50 MILLIGRAM, QD
     Dates: start: 2019
  11. ASPIRIN [Concomitant]
     Active Substance: ASPIRIN
     Dosage: 8 MILLIGRAM, QD
     Dates: start: 2021
  12. LEVOXYL [Concomitant]
     Active Substance: LEVOTHYROXINE SODIUM
  13. B complex + vitamin c [Concomitant]
     Dosage: UNK UNK, QD
     Dates: start: 2009
  14. VITAMINS [Concomitant]
     Active Substance: VITAMINS
     Dosage: UNK UNK, BID
     Dates: start: 2009
  15. MURO 128 [Concomitant]
     Active Substance: SODIUM CHLORIDE
     Dosage: UNK UNK, TID
     Dates: start: 2020

REACTIONS (11)
  - Diverticulitis [Unknown]
  - Hepatic enzyme increased [Unknown]
  - Urinary tract infection [Unknown]
  - Pain [Unknown]
  - Depression [Unknown]
  - Anxiety [Unknown]
  - Blood pressure abnormal [Unknown]
  - Muscle spasms [Unknown]
  - Gastrooesophageal reflux disease [Unknown]
  - Attention deficit hyperactivity disorder [Unknown]
  - Blood iron abnormal [Unknown]
